FAERS Safety Report 11761162 (Version 2)
Quarter: 2016Q1

REPORT INFORMATION
  Report Type: Spontaneous
  Country: US (occurrence: US)
  Receive Date: 20151120
  Receipt Date: 20160316
  Transmission Date: 20160525
  Serious: Yes (Other)
  Sender: FDA-Public Use
  Company Number: US-GLAXOSMITHKLINE-US2015GSK160025

PATIENT
  Age: 63 Year
  Sex: Female
  Weight: 74.38 kg

DRUGS (2)
  1. TANZEUM [Suspect]
     Active Substance: ALBIGLUTIDE
     Indication: TYPE 2 DIABETES MELLITUS
     Dosage: 30 MG, WE
     Route: 042
     Dates: start: 201507, end: 201509
  2. TANZEUM [Suspect]
     Active Substance: ALBIGLUTIDE
     Dosage: 50 MG, WE
     Route: 042
     Dates: start: 201509

REACTIONS (3)
  - Accident at work [Unknown]
  - Knee operation [Unknown]
  - Ligament operation [Unknown]

NARRATIVE: CASE EVENT DATE: 20151103
